FAERS Safety Report 25545241 (Version 2)
Quarter: 2025Q3

REPORT INFORMATION
  Report Type: Spontaneous
  Country: CN (occurrence: CN)
  Receive Date: 20250711
  Receipt Date: 20250731
  Transmission Date: 20251021
  Serious: Yes (Life-Threatening)
  Sender: JOHNSON AND JOHNSON
  Company Number: CN-JNJFOC-20250713536

PATIENT
  Age: 93 Year
  Sex: Male
  Weight: 40 kg

DRUGS (1)
  1. XARELTO [Suspect]
     Active Substance: RIVAROXABAN
     Indication: Femur fracture
     Dosage: 10 MG, QD
     Route: 048
     Dates: start: 20250502, end: 20250504

REACTIONS (3)
  - Thrombocytopenia [Recovered/Resolved]
  - Product prescribing issue [Unknown]
  - Product use in unapproved indication [Unknown]

NARRATIVE: CASE EVENT DATE: 20250502
